FAERS Safety Report 4642107-X (Version None)
Quarter: 2005Q2

REPORT INFORMATION
  Report Type: 
  Country: None (occurrence: None)
  Receive Date: 20050420
  Receipt Date: 20050408
  Transmission Date: 20051028
  Serious: No
  Sender: FDA-Public Use
  Company Number: 2005AP02206

PATIENT
  Sex: 0

DRUGS (2)
  1. PULMICORT [Suspect]
  2. ANTIBIOTICS [Suspect]

REACTIONS (2)
  - APLASTIC ANAEMIA [None]
  - HEPATITIS ACUTE [None]
